FAERS Safety Report 4435093-9 (Version None)
Quarter: 2004Q3

REPORT INFORMATION
  Report Type: 
  Country: None (occurrence: None)
  Receive Date: 20040726
  Receipt Date: 20040225
  Transmission Date: 20050211
  Serious: No
  Sender: FDA-Public Use
  Company Number: USA040260256

PATIENT
  Age: 74 Year
  Sex: Female

DRUGS (2)
  1. FORTEO [Suspect]
     Indication: OSTEOPOROSIS
     Dosage: 20 UG DAY
     Dates: start: 20040215
  2. CALCIUM CARBONATE [Concomitant]

REACTIONS (4)
  - DIZZINESS [None]
  - HOT FLUSH [None]
  - NAUSEA [None]
  - TOOTH DISORDER [None]
